FAERS Safety Report 25876800 (Version 1)
Quarter: 2025Q4

REPORT INFORMATION
  Report Type: Spontaneous
  Country: US (occurrence: US)
  Receive Date: 20251003
  Receipt Date: 20251003
  Transmission Date: 20260118
  Serious: No
  Sender: TAKEDA
  Company Number: US-TAKEDA-2025TUS086125

PATIENT
  Age: 25 Year
  Sex: Female
  Weight: 91 kg

DRUGS (1)
  1. HYQVIA [Suspect]
     Active Substance: HUMAN IMMUNOGLOBULIN G\HYALURONIDASE (HUMAN RECOMBINANT)
     Indication: Primary immunodeficiency syndrome
     Dosage: 30 GRAM, Q4WEEKS
     Dates: start: 2016

REACTIONS (3)
  - No adverse event [Unknown]
  - Circumstance or information capable of leading to medication error [Unknown]
  - Device infusion issue [Unknown]
